FAERS Safety Report 6272220-5 (Version None)
Quarter: 2009Q3

REPORT INFORMATION
  Report Type: 
  Country: None (occurrence: None)
  Receive Date: 20090713
  Receipt Date: 20090327
  Transmission Date: 20100115
  Serious: No
  Sender: FDA-Public Use
  Company Number: 2009BM000078

PATIENT
  Age: 8 Year
  Sex: Female
  Weight: 28.0414 kg

DRUGS (2)
  1. KUVAN [Suspect]
     Indication: PHENYLKETONURIA
     Dosage: 600 MG;QD;PO
     Route: 048
     Dates: start: 20090326
  2. CLARITIN /00413701/ (CON.) [Concomitant]

REACTIONS (2)
  - AFFECT LABILITY [None]
  - CRYING [None]
